FAERS Safety Report 13978502 (Version 2)
Quarter: 2017Q4

REPORT INFORMATION
  Report Type: Spontaneous
  Country: US (occurrence: US)
  Receive Date: 20170915
  Receipt Date: 20171011
  Transmission Date: 20180321
  Serious: Yes (Hospitalization, Other)
  Sender: FDA-Public Use
  Company Number: US-SAOL THERAPEUTICS-2017SAO01447

PATIENT
  Age: 66 Year
  Sex: Male

DRUGS (1)
  1. LIORESAL [Suspect]
     Active Substance: BACLOFEN
     Dosage: 610 ?G, \DAY
     Route: 037
     Dates: start: 20140521

REACTIONS (5)
  - Pneumocephalus [Unknown]
  - Mental status changes [Not Recovered/Not Resolved]
  - Overdose [Unknown]
  - Gait inability [Not Recovered/Not Resolved]
  - Hypotonia [Not Recovered/Not Resolved]

NARRATIVE: CASE EVENT DATE: 20170907
